FAERS Safety Report 6722171-4 (Version None)
Quarter: 2010Q2

REPORT INFORMATION
  Report Type: 
  Country: None (occurrence: None)
  Receive Date: 20100512
  Receipt Date: 20100503
  Transmission Date: 20101027
  Serious: Yes (Hospitalization, Other)
  Sender: FDA-Public Use
  Company Number: US-BAYER-201015094NA

PATIENT
  Age: 22 Year
  Sex: Female
  Weight: 46 kg

DRUGS (1)
  1. MIRENA [Suspect]
     Indication: CONTRACEPTION
     Dosage: FREQUENCY:CONTINUOUS
     Route: 015
     Dates: start: 20090717, end: 20100226

REACTIONS (2)
  - DEVICE DISLOCATION [None]
  - ECTOPIC PREGNANCY [None]
